FAERS Safety Report 7365097-8 (Version None)
Quarter: 2011Q1

REPORT INFORMATION
  Report Type: 
  Country: None (occurrence: None)
  Receive Date: 20110321
  Receipt Date: 20110320
  Transmission Date: 20110831
  Serious: No
  Sender: FDA-Public Use
  Company Number: US-PFIZER INC-2011060720

PATIENT
  Sex: Male
  Weight: 68.027 kg

DRUGS (3)
  1. PREDNISOLONE [Concomitant]
     Dosage: 50 MG, 1X/DAY
     Dates: start: 20100101
  2. WARFARIN [Concomitant]
     Dosage: UNK
  3. LIPITOR [Suspect]
     Dosage: 10 MG, 1X/DAY
     Route: 048
     Dates: start: 20100101, end: 20110301

REACTIONS (5)
  - MYALGIA [None]
  - BACK PAIN [None]
  - NECK PAIN [None]
  - PAIN IN EXTREMITY [None]
  - HEADACHE [None]
